FAERS Safety Report 25809858 (Version 1)
Quarter: 2025Q3

REPORT INFORMATION
  Report Type: Spontaneous
  Country: US (occurrence: US)
  Receive Date: 20250917
  Receipt Date: 20250917
  Transmission Date: 20251020
  Serious: Yes (Hospitalization)
  Sender: VELOXIS PHARMACEUTICALS
  Company Number: 2025-0154632

PATIENT
  Sex: Male

DRUGS (2)
  1. ENVARSUS XR [Suspect]
     Active Substance: TACROLIMUS
     Indication: Renal transplant
  2. ENVARSUS XR [Suspect]
     Active Substance: TACROLIMUS
     Indication: Liver transplant

REACTIONS (2)
  - Transplantation complication [Unknown]
  - Prophylaxis against transplant rejection [Unknown]
